FAERS Safety Report 9737002 (Version 2)
Quarter: 2013Q4

REPORT INFORMATION
  Report Type: Spontaneous
  Country: US (occurrence: US)
  Receive Date: 20131206
  Receipt Date: 20131206
  Transmission Date: 20140711
  Serious: Yes (Other)
  Sender: FDA-Public Use
  Company Number: US-GILEAD-2009-0023125

PATIENT
  Age: 59 Year
  Sex: Female

DRUGS (15)
  1. LETAIRIS [Suspect]
     Indication: PULMONARY ARTERIAL HYPERTENSION
     Route: 048
     Dates: start: 20090615, end: 20090626
  2. LISINOPRIL/HCTZ [Concomitant]
  3. HYDROCHLOROTHIAZIDE [Concomitant]
  4. LASIX [Concomitant]
  5. METOLAZONE [Concomitant]
  6. REVATIO [Concomitant]
  7. ALBUTEROL [Concomitant]
  8. SYMBICORT [Concomitant]
  9. SINGULAR [Concomitant]
  10. NASONEX [Concomitant]
  11. DARVOCET [Concomitant]
  12. JANUVIA [Concomitant]
  13. RELAFEN [Concomitant]
  14. AMARYL [Concomitant]
  15. LANTUS [Concomitant]

REACTIONS (1)
  - Oedema [Recovering/Resolving]
